FAERS Safety Report 6100051-5 (Version None)
Quarter: 2009Q1

REPORT INFORMATION
  Report Type: 
  Country: None (occurrence: None)
  Receive Date: 20090303
  Receipt Date: 20090219
  Transmission Date: 20090719
  Serious: Yes (Other)
  Sender: FDA-Public Use
  Company Number: B0561583A

PATIENT
  Age: 4 Year
  Sex: Female

DRUGS (1)
  1. AUGMENTIN '125' [Suspect]
     Indication: NASOPHARYNGITIS
     Route: 048
     Dates: start: 20090212, end: 20090218

REACTIONS (4)
  - ANAL HAEMORRHAGE [None]
  - ANAL PRURITUS [None]
  - DIARRHOEA [None]
  - ERYTHEMA [None]
